FAERS Safety Report 5226975-9 (Version None)
Quarter: 2007Q1

REPORT INFORMATION
  Report Type: 
  Country: None (occurrence: None)
  Receive Date: 20070130
  Receipt Date: 20070122
  Transmission Date: 20070707
  Serious: Yes (Other)
  Sender: FDA-Public Use
  Company Number: GXKR2006GB05212

PATIENT
  Age: 33 Year
  Sex: Female

DRUGS (3)
  1. METFORMIN (NGX)(METFORMIN) UNKNOWN [Suspect]
     Indication: DIABETES MELLITUS
     Dosage: 1 G, BID, ORAL
     Route: 048
  2. PREDNISOLONE [Suspect]
     Indication: DIABETES MELLITUS
     Dosage: 45 MG, ORAL
     Route: 048
  3. INSULIN (INSULIN) [Concomitant]

REACTIONS (2)
  - DIABETES MELLITUS INADEQUATE CONTROL [None]
  - MACULAR OEDEMA [None]
